FAERS Safety Report 9145541 (Version 3)
Quarter: 2013Q2

REPORT INFORMATION
  Report Type: Spontaneous
  Country: US (occurrence: US)
  Receive Date: 20130307
  Receipt Date: 20130510
  Transmission Date: 20140414
  Serious: No
  Sender: FDA-Public Use
  Company Number: US-PFIZER INC-2013073738

PATIENT
  Age: 61 Year
  Sex: Male

DRUGS (2)
  1. VIAGRA [Suspect]
     Indication: CARDIOVASCULAR DISORDER
     Dosage: UNK
     Dates: start: 2003
  2. VIAGRA [Suspect]
     Indication: ERECTILE DYSFUNCTION

REACTIONS (3)
  - Off label use [Unknown]
  - Peripheral coldness [Unknown]
  - Therapeutic response unexpected [Unknown]
